FAERS Safety Report 8549997 (Version 2)
Quarter: 2013Q3

REPORT INFORMATION
  Report Type: Report from Study
  Country: US (occurrence: US)
  Receive Date: 20120507
  Receipt Date: 20130917
  Transmission Date: 20140515
  Serious: Yes (Hospitalization)
  Sender: FDA-Public Use
  Company Number: US-ALEXION-A201200857

PATIENT
  Age: 27 Year
  Sex: Female

DRUGS (2)
  1. SOLIRIS [Suspect]
     Indication: HAEMOLYTIC URAEMIC SYNDROME
     Dosage: 900 MG, QW
     Route: 042
     Dates: start: 20111227, end: 201201
  2. SOLIRIS [Suspect]
     Dosage: 1200 UNK, Q2W
     Route: 042
     Dates: start: 20120124, end: 20120417

REACTIONS (3)
  - Pancreatitis [Unknown]
  - Social problem [Unknown]
  - Fatigue [Unknown]
